FAERS Safety Report 4848476-X (Version None)
Quarter: 2005Q4

REPORT INFORMATION
  Report Type: 
  Country: None (occurrence: None)
  Receive Date: 20051115
  Receipt Date: 20050823
  Transmission Date: 20060501
  Serious: No
  Sender: FDA-Public Use
  Company Number: S05-USA-04055-01

PATIENT
  Age: 89 Year
  Sex: Male

DRUGS (2)
  1. NAMENDA [Suspect]
     Indication: DEMENTIA ALZHEIMER'S TYPE
     Dates: start: 20050101
  2. DYAZIDE (HYDROCHLOROTHIAZIDE) [Concomitant]

REACTIONS (1)
  - RASH [None]
